FAERS Safety Report 23399691 (Version 1)
Quarter: 2024Q1

REPORT INFORMATION
  Report Type: Report from Study
  Country: CA (occurrence: CA)
  Receive Date: 20240113
  Receipt Date: 20240113
  Transmission Date: 20240410
  Serious: Yes (Other)
  Sender: FDA-Public Use
  Company Number: CA-UCBSA-2024000625

PATIENT
  Sex: Female

DRUGS (1)
  1. CERTOLIZUMAB PEGOL [Suspect]
     Active Substance: CERTOLIZUMAB PEGOL
     Indication: Rheumatoid arthritis
     Dosage: 400 MILLIGRAM, EV 2 X3 WEEKS(QOW)
     Route: 058
     Dates: start: 20231204

REACTIONS (5)
  - Rheumatoid arthritis [Unknown]
  - Gastroenteritis viral [Unknown]
  - Sinusitis [Recovered/Resolved]
  - Influenza [Unknown]
  - Intentional dose omission [Unknown]
